FAERS Safety Report 16706752 (Version 2)
Quarter: 2019Q4

REPORT INFORMATION
  Report Type: Spontaneous
  Country: US (occurrence: US)
  Receive Date: 20190815
  Receipt Date: 20191114
  Transmission Date: 20200122
  Serious: No
  Sender: FDA-Public Use
  Company Number: US-RIGEL PHARMACEUTICALS, INC.-2019FOS000238

PATIENT
  Age: 69 Year
  Sex: Male
  Weight: 118.37 kg

DRUGS (1)
  1. TAVALISSE [Suspect]
     Active Substance: FOSTAMATINIB
     Dosage: 150 MG, QD
     Dates: start: 20180718

REACTIONS (3)
  - Diarrhoea [Recovered/Resolved]
  - Prescribed underdose [Unknown]
  - White coat hypertension [Unknown]
